FAERS Safety Report 9106492 (Version 5)
Quarter: 2013Q2

REPORT INFORMATION
  Report Type: Report from Study
  Country: CA (occurrence: CA)
  Receive Date: 20130219
  Receipt Date: 20130515
  Transmission Date: 20140414
  Serious: Yes (Other)
  Sender: FDA-Public Use
  Company Number: CA-ROCHE-1133721

PATIENT
  Age: 59 Year
  Sex: Female
  Weight: 75 kg

DRUGS (18)
  1. ACTEMRA [Suspect]
     Indication: RHEUMATOID ARTHRITIS
     Route: 042
     Dates: start: 20120419
  2. ACTEMRA [Suspect]
     Route: 042
     Dates: start: 20120712
  3. ACTEMRA [Suspect]
     Route: 042
     Dates: start: 20120731, end: 20130102
  4. METHOTREXATE [Suspect]
     Indication: PRODUCT USED FOR UNKNOWN INDICATION
     Route: 065
  5. FOLIC ACID [Concomitant]
  6. CELEBREX [Concomitant]
  7. JANUVIA [Concomitant]
     Indication: DIABETES MELLITUS
  8. GLICLAZIDE [Concomitant]
     Indication: DIABETES MELLITUS
  9. NORVASC [Concomitant]
  10. BISOPROLOL [Concomitant]
  11. EZETROL [Concomitant]
     Indication: BLOOD CHOLESTEROL
  12. TRAMACET [Concomitant]
  13. CRESTOR [Concomitant]
  14. LANSOPRAZOLE [Concomitant]
  15. ACTONEL [Concomitant]
  16. TRAZODONE [Concomitant]
  17. FUROSEMIDE [Concomitant]
  18. VITAMIN B12 [Concomitant]

REACTIONS (4)
  - Skin ulcer [Unknown]
  - Tongue ulceration [Unknown]
  - Wound [Not Recovered/Not Resolved]
  - Infection [Unknown]
